FAERS Safety Report 13093416 (Version 2)
Quarter: 2017Q2

REPORT INFORMATION
  Report Type: Spontaneous
  Country: US (occurrence: US)
  Receive Date: 20170106
  Receipt Date: 20170504
  Transmission Date: 20170830
  Serious: No
  Sender: FDA-Public Use
  Company Number: US-GLAXOSMITHKLINE-US2017GSK000871

PATIENT
  Sex: Male

DRUGS (4)
  1. REQUIP [Suspect]
     Active Substance: ROPINIROLE HYDROCHLORIDE
     Indication: RESTLESS LEGS SYNDROME
     Dosage: 3 MG, UNK
     Dates: start: 20160227
  2. ROPINIROLE. [Suspect]
     Active Substance: ROPINIROLE
     Indication: RESTLESS LEGS SYNDROME
     Dosage: 0.5 MG, UNK
     Dates: start: 2007
  3. ROPINIROLE. [Suspect]
     Active Substance: ROPINIROLE
     Dosage: 3 MG, UNK
  4. REQUIP XL [Suspect]
     Active Substance: ROPINIROLE HYDROCHLORIDE
     Indication: RESTLESS LEGS SYNDROME
     Dosage: 4 MG, UNK
     Route: 048
     Dates: start: 20160415, end: 20160831

REACTIONS (9)
  - Adverse reaction [Unknown]
  - Drug effect incomplete [Unknown]
  - Polydipsia [Unknown]
  - Anxiety [Unknown]
  - Hyperphagia [Unknown]
  - Abnormal behaviour [Unknown]
  - Gambling disorder [Unknown]
  - Emotional distress [Unknown]
  - Obsessive-compulsive disorder [Unknown]
